FAERS Safety Report 5892977-2 (Version None)
Quarter: 2008Q3

REPORT INFORMATION
  Report Type: 
  Country: None (occurrence: None)
  Receive Date: 20080919
  Receipt Date: 20080911
  Transmission Date: 20090109
  Serious: Yes (Hospitalization)
  Sender: FDA-Public Use
  Company Number: OMPQ-NO-0809S-0823

PATIENT
  Age: 70 Year
  Sex: Male

DRUGS (1)
  1. OMNIPAQUE 140 [Suspect]
     Indication: DRUG USE FOR UNKNOWN INDICATION
     Dosage: NR, SINGLE DOSE, IV
     Route: 042
     Dates: start: 20080501, end: 20080501

REACTIONS (2)
  - CONDITION AGGRAVATED [None]
  - ECZEMA [None]
